FAERS Safety Report 19218388 (Version 1)
Quarter: 2021Q2

REPORT INFORMATION
  Report Type: Spontaneous
  Country: US (occurrence: US)
  Receive Date: 20210505
  Receipt Date: 20210505
  Transmission Date: 20210717
  Serious: No
  Sender: FDA-Public Use
  Company Number: US-BAYER-2021-135587

PATIENT
  Age: 77 Year

DRUGS (1)
  1. MIRALAX [Suspect]
     Active Substance: POLYETHYLENE GLYCOL 3350
     Indication: GASTROINTESTINAL DISORDER
     Dosage: 1 CAP FULL PER DAY 8OZ OF WATER
     Route: 048
     Dates: start: 202105, end: 20210504

REACTIONS (3)
  - Inappropriate schedule of product administration [Unknown]
  - Abdominal distension [Unknown]
  - Product physical issue [Unknown]
